FAERS Safety Report 9057557 (Version 4)
Quarter: 2013Q4

REPORT INFORMATION
  Report Type: Spontaneous
  Country: GB (occurrence: GB)
  Receive Date: 20130204
  Receipt Date: 20131202
  Transmission Date: 20140711
  Serious: Yes (Congenital Anomaly)
  Sender: FDA-Public Use
  Company Number: GB-PFIZER INC-2013039990

PATIENT
  Sex: Male

DRUGS (12)
  1. ISTIN [Suspect]
     Dosage: UNK
     Route: 064
  2. HALOPERIDOL [Suspect]
     Dosage: UNK
     Route: 064
     Dates: start: 1981
  3. DISIPAL [Suspect]
     Dosage: UNK
     Route: 064
     Dates: start: 1981
  4. DEPIXOL [Suspect]
     Dosage: UNK
     Route: 064
     Dates: start: 1981
  5. VALIUM [Suspect]
     Dosage: UNK
     Route: 064
     Dates: start: 1981
  6. RELACTON-C [Suspect]
     Dosage: UNK
     Route: 064
  7. KEMADRIN [Suspect]
     Dosage: UNK
     Route: 064
     Dates: start: 1981
  8. NORMAXIN [Suspect]
     Dosage: UNK
     Route: 064
  9. SURMONTIL [Suspect]
     Dosage: UNK
     Route: 064
  10. SPARINE [Suspect]
     Dosage: UNK
     Route: 064
     Dates: start: 1981
  11. NORMISON [Suspect]
     Dosage: UNK
     Route: 064
  12. DROLEPTAN [Suspect]
     Route: 064

REACTIONS (3)
  - Maternal exposure before pregnancy [Unknown]
  - Blindness transient [Recovered/Resolved]
  - Learning disability [Unknown]
